FAERS Safety Report 4757206-1 (Version None)
Quarter: 2005Q3

REPORT INFORMATION
  Report Type: 
  Country: None (occurrence: None)
  Receive Date: 20050829
  Receipt Date: 20050829
  Transmission Date: 20060218
  Serious: Yes (Hospitalization)
  Sender: FDA-Public Use
  Company Number: None

PATIENT
  Sex: Female
  Weight: 63.5 kg

DRUGS (3)
  1. TEMODAL [Suspect]
     Indication: GLIOBLASTOMA MULTIFORME
     Dosage: SEE IMAGE
     Dates: start: 20050722
  2. TEMODAL [Suspect]
     Indication: GLIOBLASTOMA MULTIFORME
     Dosage: SEE IMAGE
     Dates: start: 20050810
  3. RADIATION [Suspect]
     Dosage: SEE IMAGE
     Dates: start: 20050810

REACTIONS (6)
  - ASTHMA [None]
  - CONDITION AGGRAVATED [None]
  - HAEMOGLOBIN DECREASED [None]
  - NAUSEA [None]
  - PNEUMONIA ASPIRATION [None]
  - VOMITING [None]
